FAERS Safety Report 14379620 (Version 1)
Quarter: 2018Q1

REPORT INFORMATION
  Report Type: Spontaneous
  Country: IL (occurrence: US)
  Receive Date: 20180111
  Receipt Date: 20180111
  Transmission Date: 20180509
  Serious: Yes (Death)
  Sender: FDA-Public Use
  Company Number: None

PATIENT
  Age: 59 Year
  Sex: Male
  Weight: 85 kg

DRUGS (10)
  1. VASOPRESSIN. [Concomitant]
     Active Substance: VASOPRESSIN
  2. AMPOTERICIN [Concomitant]
  3. PROPOFOL. [Concomitant]
     Active Substance: PROPOFOL
  4. NOR ADRENALIN [Concomitant]
  5. EPCLUSA [Suspect]
     Active Substance: SOFOSBUVIR\VELPATASVIR
     Indication: HEPATITIS C
     Dosage: 1 PILL EVERY DAY ORAL
     Route: 048
     Dates: start: 20170803, end: 20171023
  6. STEROIDS [Concomitant]
     Active Substance: UNSPECIFIED INGREDIENT
  7. HEPARIN [Concomitant]
     Active Substance: HEPARIN SODIUM
  8. KETAMINE [Concomitant]
     Active Substance: KETAMINE
  9. COLIRACIN [Concomitant]
  10. FENTANYL. [Concomitant]
     Active Substance: FENTANYL

REACTIONS (12)
  - Peritonitis bacterial [None]
  - Shock haemorrhagic [None]
  - Systemic candida [None]
  - Peritonitis [None]
  - Gastrointestinal haemorrhage [None]
  - Pneumonia [None]
  - Septic shock [None]
  - Sepsis [None]
  - Encephalopathy [None]
  - Varices oesophageal [None]
  - Ascites [None]
  - Staphylococcal bacteraemia [None]

NARRATIVE: CASE EVENT DATE: 20180110
